FAERS Safety Report 5742388-5 (Version None)
Quarter: 2008Q2

REPORT INFORMATION
  Report Type: 
  Country: None (occurrence: None)
  Receive Date: 20080519
  Receipt Date: 20080507
  Transmission Date: 20081010
  Serious: Yes (Death, Hospitalization)
  Sender: FDA-Public Use
  Company Number: BE-ELI_LILLY_AND_COMPANY-BE200805002820

PATIENT
  Age: 71 Year
  Sex: Female

DRUGS (1)
  1. GEMCITABINE HCL [Suspect]
     Indication: CHEMOTHERAPY
     Dosage: 2700 MG BY A 30 MINUTE INFUSION
     Route: 042

REACTIONS (2)
  - DEATH [None]
  - THROMBOTIC THROMBOCYTOPENIC PURPURA [None]
